FAERS Safety Report 8511169-1 (Version None)
Quarter: 2012Q3

REPORT INFORMATION
  Report Type: 
  Country: None (occurrence: None)
  Receive Date: 20120716
  Receipt Date: 20120709
  Transmission Date: 20120928
  Serious: Yes (Life-Threatening, Hospitalization, Other)
  Sender: FDA-Public Use
  Company Number: DE-BAYER-2012-060664

PATIENT
  Age: 22 Year
  Sex: Female
  Weight: 89 kg

DRUGS (2)
  1. MARCUMAR [Concomitant]
  2. YAZ [Suspect]
     Dosage: 1 DF, UNK
     Route: 048

REACTIONS (6)
  - PULMONARY EMBOLISM [None]
  - LOBAR PNEUMONIA [None]
  - NORMOCHROMIC NORMOCYTIC ANAEMIA [None]
  - COUGH [None]
  - DYSPNOEA [None]
  - CHEST PAIN [None]
